FAERS Safety Report 9985387 (Version 1)
Quarter: 2014Q1

REPORT INFORMATION
  Report Type: Report from Study
  Country: US (occurrence: US)
  Receive Date: 20140307
  Receipt Date: 20140307
  Transmission Date: 20141002
  Serious: No
  Sender: FDA-Public Use
  Company Number: US-ABBVIE-13P-163-1184985-00

PATIENT
  Sex: Male

DRUGS (9)
  1. HUMIRA [Suspect]
     Indication: RHEUMATOID ARTHRITIS
     Dates: start: 201309
  2. MOBIC [Concomitant]
     Indication: ANTIINFLAMMATORY THERAPY
  3. NORCO [Concomitant]
     Indication: PAIN
     Dosage: 10/325 MG 1 TO 1.5 TABLET
  4. CYMBALTA [Concomitant]
     Indication: DEPRESSION
  5. FENOFIBRATE [Concomitant]
     Indication: GLUCOSE TOLERANCE IMPAIRED
  6. BARACLUDE [Concomitant]
     Indication: LIVER DISORDER
  7. BARACLUDE [Concomitant]
     Indication: PROPHYLAXIS
  8. METOPROLOL [Concomitant]
     Indication: BLOOD PRESSURE
  9. METOPROLOL [Concomitant]

REACTIONS (3)
  - Incorrect product storage [Unknown]
  - Arthralgia [Not Recovered/Not Resolved]
  - Rheumatoid arthritis [Not Recovered/Not Resolved]
